FAERS Safety Report 13284415 (Version 3)
Quarter: 2017Q2

REPORT INFORMATION
  Report Type: Spontaneous
  Country: US (occurrence: US)
  Receive Date: 20170301
  Receipt Date: 20170427
  Transmission Date: 20170830
  Serious: Yes (Other)
  Sender: FDA-Public Use
  Company Number: US-BAYER-2017-039807

PATIENT
  Age: 28 Year
  Sex: Female
  Weight: 77.55 kg

DRUGS (1)
  1. SKYLA [Suspect]
     Active Substance: LEVONORGESTREL
     Indication: CONTRACEPTION
     Dosage: 14 MCG/24HR, CONT
     Route: 015
     Dates: start: 20151120, end: 20160916

REACTIONS (6)
  - Drug ineffective [None]
  - Amenorrhoea [None]
  - Ruptured ectopic pregnancy [None]
  - Pelvic pain [None]
  - Haemorrhage in pregnancy [None]
  - Ectopic pregnancy with contraceptive device [None]
